FAERS Safety Report 7611185-8 (Version None)
Quarter: 2011Q3

REPORT INFORMATION
  Report Type: 
  Country: None (occurrence: None)
  Receive Date: 20110707
  Receipt Date: 20110623
  Transmission Date: 20111222
  Serious: Yes (Other)
  Sender: FDA-Public Use
  Company Number: 2011-00680

PATIENT
  Age: 64 Year
  Sex: Male
  Weight: 113.3993 kg

DRUGS (4)
  1. HUMALOG [Concomitant]
  2. COREG [Concomitant]
  3. SIMVASTATIN [Suspect]
     Indication: HYPERLIPIDAEMIA
     Dosage: 80 MG (80 MG, 1 N 1 D), PER ORAL
     Route: 048
     Dates: start: 20060101
  4. LANTUS [Concomitant]

REACTIONS (3)
  - RENAL FAILURE [None]
  - MUSCULAR WEAKNESS [None]
  - RENAL DISORDER [None]
